FAERS Safety Report 4595403-9 (Version None)
Quarter: 2005Q1

REPORT INFORMATION
  Report Type: 
  Country: None (occurrence: None)
  Receive Date: 20050228
  Receipt Date: 20050228
  Transmission Date: 20050727
  Serious: Yes (Other)
  Sender: FDA-Public Use
  Company Number: None

PATIENT
  Age: 57 Year
  Sex: Male
  Weight: 70.3075 kg

DRUGS (2)
  1. VANCOMYCIN [Suspect]
     Indication: ENDOCARDITIS
     Dosage: 1G IV QD
     Route: 042
     Dates: start: 20050219, end: 20050225
  2. ROCEPHIN [Suspect]
     Indication: ENDOCARDITIS
     Dosage: 2 MG IV QD
     Route: 042
     Dates: start: 20050219, end: 20050321

REACTIONS (1)
  - DYSGEUSIA [None]
